FAERS Safety Report 12208712 (Version 1)
Quarter: 2016Q1

REPORT INFORMATION
  Report Type: Spontaneous
  Country: US (occurrence: US)
  Receive Date: 20160324
  Receipt Date: 20160324
  Transmission Date: 20160526
  Serious: No
  Sender: FDA-Public Use
  Company Number: US-PFIZER INC-2016128663

PATIENT
  Age: 73 Year
  Sex: Male
  Weight: 118 kg

DRUGS (2)
  1. CORTISONE ACETATE. [Suspect]
     Active Substance: CORTISONE ACETATE
     Indication: ARTHRALGIA
     Dosage: UNK
  2. CORTISONE ACETATE. [Suspect]
     Active Substance: CORTISONE ACETATE
     Indication: OSTEOARTHRITIS

REACTIONS (1)
  - Drug ineffective [Unknown]
